FAERS Safety Report 19826487 (Version 1)
Quarter: 2021Q3

REPORT INFORMATION
  Report Type: Other
  Country: GB (occurrence: GB)
  Receive Date: 20210914
  Receipt Date: 20210914
  Transmission Date: 20211014
  Serious: Yes (Life-Threatening, Hospitalization, Other)
  Sender: FDA-Public Use
  Company Number: GB-LUPIN PHARMACEUTICALS INC.-2021-16933

PATIENT
  Sex: Female

DRUGS (13)
  1. SERTRALINE [Suspect]
     Active Substance: SERTRALINE HYDROCHLORIDE
     Dosage: 100 MILLIGRAM, QD (28 TABLETS)
     Route: 048
     Dates: start: 20210223
  2. SERTRALINE [Suspect]
     Active Substance: SERTRALINE HYDROCHLORIDE
     Dosage: 150 MILLIGRAM, QD
     Route: 048
     Dates: start: 20210412, end: 20210412
  3. CITALOPRAM [Suspect]
     Active Substance: CITALOPRAM HYDROBROMIDE
     Dosage: 1 DOSAGE FORM, QD (28 TABLET)
     Route: 048
     Dates: start: 20210423
  4. PARACETAMOL [Concomitant]
     Active Substance: ACETAMINOPHEN
     Indication: PRODUCT USED FOR UNKNOWN INDICATION
     Dosage: UNK, 2 CAPSULES
     Route: 065
  5. SERTRALINE [Suspect]
     Active Substance: SERTRALINE HYDROCHLORIDE
     Indication: MIXED ANXIETY AND DEPRESSIVE DISORDER
     Dosage: 100 MILLIGRAM, QD (28 TABLETS)
     Route: 048
     Dates: start: 20210119, end: 20210412
  6. SALBUTAMOL [Concomitant]
     Active Substance: ALBUTEROL
     Indication: PRODUCT USED FOR UNKNOWN INDICATION
     Dosage: 100MICROGRAMS/DOSE, CFC FREE INHALE 2 DOSES PRN
     Route: 065
  7. SERTRALINE [Suspect]
     Active Substance: SERTRALINE HYDROCHLORIDE
     Dosage: 100 MILLIGRAM, QD AT NIGHT (28 TABLETS)
     Route: 048
     Dates: start: 20210128
  8. CITALOPRAM [Suspect]
     Active Substance: CITALOPRAM HYDROBROMIDE
     Indication: PRODUCT USED FOR UNKNOWN INDICATION
     Dosage: 20 MILLIGRAM, 2 TABLETS
     Route: 048
     Dates: start: 20210412, end: 20210412
  9. COCODAMOL [Concomitant]
     Active Substance: ACETAMINOPHEN\CODEINE PHOSPHATE
     Indication: PRODUCT USED FOR UNKNOWN INDICATION
     Dosage: PT TOOK 100 TABLETS YESTERDAY AT 4PM
     Route: 065
  10. FOSTAIR [Concomitant]
     Active Substance: BECLOMETHASONE\FORMOTEROL
     Indication: PRODUCT USED FOR UNKNOWN INDICATION
     Dosage: ONE PUFF TO BE INHALED TWICE PER DAY ALSO ONE PUFF AS NEEDED TO A MAXIMUM OF EIGHT PUFFS PER DAY ? P
     Route: 065
  11. DOCUSATE [Concomitant]
     Active Substance: DOCUSATE
     Indication: PRODUCT USED FOR UNKNOWN INDICATION
     Dosage: 100 MILLIGRAM, TID, AS NEEDED 84 CAPSULES
     Route: 065
     Dates: start: 20210119
  12. DOCUSATE [Concomitant]
     Active Substance: DOCUSATE
     Dosage: 100 MILLIGRAM, TID, AS NEEDED, 84 CAPSULES
     Route: 065
     Dates: start: 20210128
  13. FOSTAIR [Concomitant]
     Active Substance: BECLOMETHASONE\FORMOTEROL
     Dosage: ONE PUFF TO BE INHALED TWICE PER DAY ALSO ONE PUFF AS NEEDED TO A MAXIMUM OF EIGHT PUFFS PER DAY 1 X
     Route: 065
     Dates: start: 20210107

REACTIONS (2)
  - Intentional overdose [Unknown]
  - Suicidal ideation [Unknown]
